FAERS Safety Report 6819647-8 (Version None)
Quarter: 2010Q3

REPORT INFORMATION
  Report Type: 
  Country: None (occurrence: None)
  Receive Date: 20100707
  Receipt Date: 20100706
  Transmission Date: 20110219
  Serious: Yes (Hospitalization, Other)
  Sender: FDA-Public Use
  Company Number: NL-ROXANE LABORATORIES, INC.-2010-RO-00786RO

PATIENT
  Age: 83 Year
  Sex: Female

DRUGS (7)
  1. CITALOPRAM HYDROBROMIDE [Suspect]
     Indication: DEPRESSION
     Dosage: 10 MG
  2. CITALOPRAM HYDROBROMIDE [Suspect]
     Dosage: 20 MG
  3. LEVETIRACETAM [Suspect]
     Dosage: 1000 MG
  4. CALCIUM CARBONATE [Suspect]
     Dosage: 1250 MG
  5. CARBASALATE CALCIUM [Suspect]
     Dosage: 38 MG
  6. CARBAMAZEPINE [Suspect]
     Dosage: 600 MG
  7. ALENDRONATE [Suspect]

REACTIONS (6)
  - FALL [None]
  - HAEMANGIOMA OF LIVER [None]
  - HEPATIC ENZYME INCREASED [None]
  - HEPATOTOXICITY [None]
  - LIVER INJURY [None]
  - LOSS OF CONSCIOUSNESS [None]
